FAERS Safety Report 9799716 (Version 2)
Quarter: 2014Q1

REPORT INFORMATION
  Report Type: Spontaneous
  Country: US (occurrence: US)
  Receive Date: 20140106
  Receipt Date: 20140106
  Transmission Date: 20141002
  Serious: No
  Sender: FDA-Public Use
  Company Number: US-GILEAD-2010-0032624

PATIENT
  Sex: Female
  Weight: 63.5 kg

DRUGS (15)
  1. LETAIRIS [Suspect]
     Indication: PULMONARY ARTERIAL HYPERTENSION
     Route: 048
     Dates: start: 20100419, end: 201010
  2. TENORMIN [Concomitant]
  3. PRAVAMEL [Concomitant]
  4. LOTREL [Concomitant]
  5. ASPIRIN [Concomitant]
  6. OXYGEN [Concomitant]
  7. METFORMIN [Concomitant]
  8. AMARYL [Concomitant]
  9. NEXIUM [Concomitant]
  10. NASONEX [Concomitant]
  11. CHLORDIAZEPOXIDE/CLIDINIUM [Concomitant]
  12. CALTRATE W-D [Concomitant]
  13. CYANOCOBALAMIN [Concomitant]
  14. FERROUS SULFATE [Concomitant]
  15. OMEGA 3 [Concomitant]

REACTIONS (5)
  - Respiratory rate increased [Unknown]
  - Oxygen saturation decreased [Unknown]
  - Asthenia [Unknown]
  - Nervousness [Unknown]
  - Anaemia [Recovered/Resolved]
